FAERS Safety Report 7135654-2 (Version None)
Quarter: 2010Q4

REPORT INFORMATION
  Report Type: 
  Country: None (occurrence: None)
  Receive Date: 20101203
  Receipt Date: 20101125
  Transmission Date: 20110411
  Serious: Yes (Other)
  Sender: FDA-Public Use
  Company Number: ES-ROCHE-744559

PATIENT
  Age: 49 Year
  Sex: Female
  Weight: 56 kg

DRUGS (1)
  1. ROACTEMRA [Suspect]
     Indication: RHEUMATOID ARTHRITIS
     Dosage: FORM: INFUSION
     Route: 042
     Dates: start: 20100323, end: 20101101

REACTIONS (5)
  - DRUG INEFFECTIVE [None]
  - EYE INFECTION [None]
  - EYELID OEDEMA [None]
  - NODULE [None]
  - RASH PUSTULAR [None]
